FAERS Safety Report 25065628 (Version 1)
Quarter: 2025Q1

REPORT INFORMATION
  Report Type: Spontaneous
  Country: DE (occurrence: DE)
  Receive Date: 20250311
  Receipt Date: 20250311
  Transmission Date: 20250409
  Serious: Yes (Other)
  Sender: ALEXION PHARMACEUTICALS
  Company Number: DE-AstraZeneca-CH-00822670AM

PATIENT
  Age: 60 Year

DRUGS (2)
  1. LYNPARZA [Suspect]
     Active Substance: OLAPARIB
     Indication: Ovarian cancer
     Dosage: 150 MILLIGRAM, QID
  2. LEVOTHYROXINE [Concomitant]
     Active Substance: LEVOTHYROXINE
     Indication: Hypothyroidism
     Route: 065

REACTIONS (3)
  - Ovarian cancer recurrent [Unknown]
  - Hypothyroidism [Unknown]
  - Metastases to stomach [Unknown]
